FAERS Safety Report 4392681-6 (Version None)
Quarter: 2004Q3

REPORT INFORMATION
  Report Type: 
  Country: None (occurrence: None)
  Receive Date: 20040708
  Receipt Date: 20040628
  Transmission Date: 20050211
  Serious: Yes (Hospitalization)
  Sender: FDA-Public Use
  Company Number: PHBS2004ES08694

PATIENT
  Sex: Female

DRUGS (1)
  1. MELLERIL RETARD [Suspect]
     Dosage: 100 MG/D
     Route: 048
     Dates: start: 19980101

REACTIONS (9)
  - ABDOMINAL PAIN UPPER [None]
  - COMA [None]
  - CONSTIPATION [None]
  - HEADACHE [None]
  - MENINGITIS TUBERCULOUS [None]
  - MUSCLE RIGIDITY [None]
  - PARAESTHESIA [None]
  - PYREXIA [None]
  - TREMOR [None]
